FAERS Safety Report 9354513 (Version 1)
Quarter: 2013Q2

REPORT INFORMATION
  Report Type: Spontaneous
  Country: US (occurrence: US)
  Receive Date: 20130618
  Receipt Date: 20130618
  Transmission Date: 20140414
  Serious: No
  Sender: FDA-Public Use
  Company Number: US-009507513-1306USA005928

PATIENT
  Sex: Female

DRUGS (7)
  1. VIOXX [Suspect]
     Dosage: ABOUT 1 PILL
     Route: 048
  2. ZOCOR [Suspect]
     Dosage: ABOUT 1 PILL
     Route: 048
  3. LIPITOR [Suspect]
     Dosage: ABOUT 1 PILL
     Route: 048
  4. GLUCOPHAGE [Concomitant]
     Dosage: 3 PER DAY, TID
  5. GLYNASE (GLYBURIDE) [Concomitant]
     Dosage: 6 MG, QD
  6. SYNTHROID [Concomitant]
     Dosage: UNK, QD
  7. BYSTOLIC [Concomitant]
     Dosage: 20 MG, QD

REACTIONS (11)
  - Dysphagia [Unknown]
  - Muscle spasms [Unknown]
  - Throat tightness [Unknown]
  - Fear [Unknown]
  - Feeling abnormal [Unknown]
  - Chest discomfort [Unknown]
  - Pharyngeal oedema [Unknown]
  - Swollen tongue [Unknown]
  - Hypoaesthesia [Unknown]
  - Adverse reaction [Unknown]
  - Memory impairment [Unknown]
